FAERS Safety Report 7633785-1 (Version None)
Quarter: 2011Q3

REPORT INFORMATION
  Report Type: 
  Country: None (occurrence: None)
  Receive Date: 20110725
  Receipt Date: 20110714
  Transmission Date: 20111222
  Serious: Yes (Hospitalization)
  Sender: FDA-Public Use
  Company Number: AU-GENZYME-CLOF-1001416

PATIENT
  Sex: Male

DRUGS (5)
  1. CLOLAR [Suspect]
     Dosage: 20 MG/M2, QDX5 CYCLE 3
     Route: 042
  2. ONDANSETRON [Suspect]
     Indication: PRODUCT USED FOR UNKNOWN INDICATION
     Dosage: UNK
     Route: 065
  3. CLOLAR [Suspect]
     Dosage: 20 MG/M2, QDX5 CYCLE 4
     Route: 042
     Dates: end: 20110416
  4. CLOLAR [Suspect]
     Dosage: 20 MG/M2, QDX5 CYCLE 2
     Route: 042
  5. CLOLAR [Suspect]
     Indication: ACUTE LEUKAEMIA
     Dosage: 20 MG/M2, QDX5 CYCLE 1
     Route: 042
     Dates: start: 20110118, end: 20110122

REACTIONS (4)
  - CONSTIPATION [None]
  - URINARY RETENTION [None]
  - FEBRILE NEUTROPENIA [None]
  - PLEURAL EFFUSION [None]
